FAERS Safety Report 23905987 (Version 1)
Quarter: 2024Q2

REPORT INFORMATION
  Report Type: Spontaneous
  Country: CN (occurrence: CN)
  Receive Date: 20240527
  Receipt Date: 20240527
  Transmission Date: 20240716
  Serious: Yes (Hospitalization, Other)
  Sender: FDA-Public Use
  Company Number: CN-Jiangsu Hansoh Pharmaceutical Co., Ltd-2157458

PATIENT
  Age: 40 Year
  Sex: Male
  Weight: 57 kg

DRUGS (3)
  1. GEMCITABINE HYDROCHLORIDE [Suspect]
     Active Substance: GEMCITABINE HYDROCHLORIDE
     Indication: Bile duct adenocarcinoma
     Route: 041
     Dates: start: 20240426, end: 20240426
  2. CISPLATIN [Suspect]
     Active Substance: CISPLATIN
     Route: 041
     Dates: start: 20240426, end: 20240426
  3. TORIPALIMAB [Suspect]
     Active Substance: TORIPALIMAB
     Route: 041
     Dates: start: 20240426, end: 20240426

REACTIONS (4)
  - Myelosuppression [Recovering/Resolving]
  - Off label use [Unknown]
  - Vomiting [Recovering/Resolving]
  - Dizziness [Recovering/Resolving]

NARRATIVE: CASE EVENT DATE: 20240426
